FAERS Safety Report 9289373 (Version 2)
Quarter: 2013Q2

REPORT INFORMATION
  Report Type: Spontaneous
  Country: BE (occurrence: BE)
  Receive Date: 20130514
  Receipt Date: 20130606
  Transmission Date: 20140414
  Serious: Yes (Death)
  Sender: FDA-Public Use
  Company Number: BE-BAXTER-2013BAX017138

PATIENT
  Age: 40 Year
  Sex: Male

DRUGS (5)
  1. DIANEAL PD4 GLUCOSE 1,36 % (13,6 MG/ML), SOLUTION POUR DIALYSE P?RITON [Suspect]
     Indication: PERITONEAL DIALYSIS
     Route: 033
     Dates: end: 2011
  2. EXTRANEAL, SOLUTION POUR DIALYSE P?RITON?ALE [Suspect]
     Indication: PERITONEAL DIALYSIS
     Route: 033
     Dates: end: 20110505
  3. EXTRANEAL, SOLUTION POUR DIALYSE P?RITON?ALE [Suspect]
     Route: 033
     Dates: start: 20110505
  4. PHYSIONEAL_1.36% PHYSIONEAL 35_SOLUTION FOR PERITONEAL DIALYSIS_BAG, P [Suspect]
     Indication: PERITONEAL DIALYSIS
     Route: 033
  5. PHYSIONEAL_1.36% PHYSIONEAL 35_SOLUTION FOR PERITONEAL DIALYSIS_BAG, P [Suspect]
     Indication: PERITONEAL DIALYSIS
     Route: 033
     Dates: start: 20110505

REACTIONS (1)
  - Death [Fatal]
